FAERS Safety Report 4866578-9 (Version None)
Quarter: 2005Q4

REPORT INFORMATION
  Report Type: 
  Country: None (occurrence: None)
  Receive Date: 20051221
  Receipt Date: 20050516
  Transmission Date: 20060501
  Serious: Yes (Hospitalization)
  Sender: FDA-Public Use
  Company Number: 2005BI000197

PATIENT
  Age: 57 Year
  Sex: Female

DRUGS (10)
  1. AVONEX [Suspect]
     Indication: MULTIPLE SCLEROSIS
     Dosage: 30 UG; QW; IM
     Route: 030
     Dates: start: 20020101
  2. AVONEX [Suspect]
     Indication: MULTIPLE SCLEROSIS
     Dosage: 30 UG; QW; IM
     Route: 030
     Dates: start: 20040824, end: 20041211
  3. BEXTRA [Concomitant]
  4. CYLERT [Concomitant]
  5. ESTRADIOL INJ [Concomitant]
  6. PAXIL [Concomitant]
  7. PROTONIX [Concomitant]
  8. ES TYLENOL [Concomitant]
  9. LACTAID [Concomitant]
  10. CLONAZEPAM [Concomitant]

REACTIONS (3)
  - HEPATITIS TOXIC [None]
  - NEPHROLITHIASIS [None]
  - URINARY TRACT INFECTION [None]
